FAERS Safety Report 11661323 (Version 4)
Quarter: 2015Q4

REPORT INFORMATION
  Report Type: Not Available
  Country: JP (occurrence: JP)
  Receive Date: 20151026
  Receipt Date: 20151109
  Transmission Date: 20160304
  Serious: Yes (Hospitalization, Other)
  Sender: FDA-Public Use
  Company Number: JP-PURDUE PHARMA-GBR-2015-0031651

PATIENT
  Age: 88 Year
  Sex: Female

DRUGS (15)
  1. OXYCODONE HCL IR POWDER 0.5% [Suspect]
     Active Substance: OXYCODONE HYDROCHLORIDE
     Indication: CANCER PAIN
     Dosage: 2.5 MG ONCE OR TWICE DAILY
     Route: 048
     Dates: start: 20150906
  2. OXYCODONE HCL IR POWDER 0.5% [Suspect]
     Active Substance: OXYCODONE HYDROCHLORIDE
     Dosage: 2.5 MG, 7 TIMES
     Route: 048
     Dates: start: 20151001
  3. NOVAMIN                            /00013301/ [Suspect]
     Active Substance: PROCHLORPERAZINE MALEATE
     Indication: VOMITING
  4. HUMULIN NOS [Concomitant]
     Active Substance: INSULIN HUMAN
     Dosage: UNK
     Route: 065
     Dates: end: 20151001
  5. NEXIUM [Concomitant]
     Active Substance: ESOMEPRAZOLE MAGNESIUM
     Route: 065
  6. COMELIAN [Concomitant]
     Active Substance: DILAZEP
     Route: 048
  7. LOXOPROFEN [Concomitant]
     Active Substance: LOXOPROFEN
     Route: 065
  8. FUROSEMIDE. [Concomitant]
     Active Substance: FUROSEMIDE
     Route: 065
  9. SEISHOKU [Concomitant]
     Active Substance: SODIUM CHLORIDE
     Dosage: 500 ML, SINGLE
     Route: 041
  10. PRIMPERAN [Concomitant]
     Active Substance: METOCLOPRAMIDE HYDROCHLORIDE
     Dosage: UNK
     Route: 048
     Dates: start: 20151001
  11. OXYCODONE HCL PR TABLET [Suspect]
     Active Substance: OXYCODONE HYDROCHLORIDE
     Indication: CANCER PAIN
     Dosage: 5 MG, BID
     Route: 048
     Dates: start: 20151002, end: 20151002
  12. NOVAMIN                            /00013301/ [Suspect]
     Active Substance: PROCHLORPERAZINE MALEATE
     Indication: NAUSEA
     Dosage: 5 MG, DAILY
     Route: 030
     Dates: start: 20151002, end: 20151002
  13. AKINETON                           /00079503/ [Suspect]
     Active Substance: BIPERIDEN LACTATE
     Indication: DYSKINESIA
     Dosage: 5 MG, DAILY
     Route: 030
     Dates: start: 20151002, end: 20151002
  14. RINDERON                           /00008501/ [Concomitant]
     Active Substance: BETAMETHASONE
     Route: 065
  15. SERENACE [Concomitant]
     Active Substance: HALOPERIDOL
     Route: 030

REACTIONS (5)
  - Urinary retention [Recovering/Resolving]
  - Delirium [Recovering/Resolving]
  - Thirst [Recovering/Resolving]
  - Dyskinesia [Recovering/Resolving]
  - Vomiting [Recovering/Resolving]

NARRATIVE: CASE EVENT DATE: 20151001
